FAERS Safety Report 5758611-7 (Version None)
Quarter: 2008Q2

REPORT INFORMATION
  Report Type: 
  Country: None (occurrence: None)
  Receive Date: 20080604
  Receipt Date: 20080602
  Transmission Date: 20081010
  Serious: Yes (Hospitalization)
  Sender: FDA-Public Use
  Company Number: B0523324A

PATIENT
  Age: 54 Year
  Sex: Male

DRUGS (15)
  1. CARVEDILOL [Suspect]
     Dosage: 2.5MG TWICE PER DAY
     Route: 048
  2. BEPRICOR [Suspect]
     Route: 065
  3. DIGOSIN [Suspect]
     Route: 048
     Dates: end: 20071228
  4. VASOLAN [Suspect]
     Route: 048
     Dates: start: 20071218, end: 20071228
  5. ASPIRIN [Concomitant]
     Route: 065
  6. LANSOPRAZOLE [Concomitant]
     Route: 065
  7. RENIVACE [Concomitant]
     Route: 065
  8. LASIX [Concomitant]
     Route: 065
  9. LIPITOR [Concomitant]
     Route: 065
  10. WARFARIN SODIUM [Concomitant]
     Route: 065
  11. LENDORMIN [Concomitant]
     Route: 065
  12. ALLOZYM [Concomitant]
     Route: 065
  13. EPADEL [Concomitant]
     Route: 065
  14. HUMALOG MIX [Concomitant]
     Route: 065
  15. HUMACART [Concomitant]
     Route: 065

REACTIONS (6)
  - ASTHENIA [None]
  - BLOOD PRESSURE DECREASED [None]
  - BRADYCARDIA [None]
  - DIZZINESS [None]
  - FEELING COLD [None]
  - HYPERKALAEMIA [None]
